FAERS Safety Report 8163297-0 (Version None)
Quarter: 2012Q1

REPORT INFORMATION
  Report Type: 
  Country: None (occurrence: None)
  Receive Date: 20120224
  Receipt Date: 20110410
  Transmission Date: 20120608
  Serious: No
  Sender: FDA-Public Use
  Company Number: US-PFIZER INC-K201100428

PATIENT
  Age: 69 Year
  Sex: Male
  Weight: 124.72 kg

DRUGS (1)
  1. FLECTOR [Suspect]
     Indication: PAIN IN EXTREMITY
     Dosage: 1 PATCH, SINGLE
     Route: 061
     Dates: start: 20110411, end: 20110411

REACTIONS (1)
  - APPLICATION SITE BURN [None]
